FAERS Safety Report 5403755-2 (Version None)
Quarter: 2007Q3

REPORT INFORMATION
  Report Type: 
  Country: None (occurrence: None)
  Receive Date: 20070802
  Receipt Date: 20070723
  Transmission Date: 20080115
  Serious: Yes (Life-Threatening)
  Sender: FDA-Public Use
  Company Number: US-KINGPHARMUSA00001-K200700923

PATIENT

DRUGS (5)
  1. ALTACE [Suspect]
     Indication: HYPERTENSION
     Dosage: 10 MG, QD
     Route: 048
     Dates: start: 20070219, end: 20070704
  2. ALDACTONE [Suspect]
     Indication: CARDIAC FAILURE
     Dosage: 100 MG, QD
     Route: 048
     Dates: start: 20070219, end: 20070704
  3. FUROSEMIDE [Concomitant]
     Dosage: 75 MG, QD
     Route: 048
     Dates: start: 20050101
  4. ESOMEPRAZOLE MAGNESIUM [Concomitant]
     Dosage: 20 MG, QD
     Route: 048
     Dates: start: 20050101
  5. ASPIRIN [Concomitant]
     Dosage: 100 MG, QD
     Route: 048
     Dates: start: 20050101

REACTIONS (10)
  - BLOOD CREATININE INCREASED [None]
  - BLOOD GLUCOSE ABNORMAL [None]
  - BLOOD UREA INCREASED [None]
  - BRADYARRHYTHMIA [None]
  - CARDIOGENIC SHOCK [None]
  - ELECTROCARDIOGRAM ABNORMAL [None]
  - HEART RATE DECREASED [None]
  - HYPERKALAEMIA [None]
  - HYPOTENSION [None]
  - RENAL FAILURE ACUTE [None]
